FAERS Safety Report 24353255 (Version 1)
Quarter: 2024Q3

REPORT INFORMATION
  Report Type: Spontaneous
  Country: US (occurrence: US)
  Receive Date: 20240923
  Receipt Date: 20240923
  Transmission Date: 20241017
  Serious: No
  Sender: ROCHE
  Company Number: US-ROCHE-3453441

PATIENT
  Age: 63 Year
  Sex: Female

DRUGS (10)
  1. TRASTUZUMAB [Suspect]
     Active Substance: TRASTUZUMAB
     Indication: Invasive ductal breast carcinoma
     Route: 065
  2. CARBOPLATIN [Suspect]
     Active Substance: CARBOPLATIN
     Indication: Invasive ductal breast carcinoma
     Route: 065
  3. DOCETAXEL [Suspect]
     Active Substance: DOCETAXEL\DOCETAXEL ANHYDROUS
     Indication: Invasive ductal breast carcinoma
     Route: 065
  4. METHYLPREDNISOLONE [Concomitant]
     Active Substance: METHYLPREDNISOLONE
     Dosage: FOR 5 DAYS
  5. PREDNISONE [Concomitant]
     Active Substance: PREDNISONE
     Dosage: FOR 4 WEEKS
  6. PREDNISONE [Concomitant]
     Active Substance: PREDNISONE
  7. PREDNISONE [Concomitant]
     Active Substance: PREDNISONE
  8. PREDNISONE [Concomitant]
     Active Substance: PREDNISONE
  9. DULOXETINE [Concomitant]
     Active Substance: DULOXETINE
  10. PREGABALIN [Concomitant]
     Active Substance: PREGABALIN

REACTIONS (1)
  - Polyneuropathy [Unknown]
